FAERS Safety Report 25826746 (Version 1)
Quarter: 2025Q3

REPORT INFORMATION
  Report Type: Report from Study
  Country: US (occurrence: US)
  Receive Date: 20250920
  Receipt Date: 20250920
  Transmission Date: 20251020
  Serious: Yes (Other)
  Sender: ALEXION PHARMACEUTICALS
  Company Number: US-AstraZeneca-CH-00782948A

PATIENT
  Sex: Female

DRUGS (3)
  1. ULTOMIRIS [Suspect]
     Active Substance: RAVULIZUMAB-CWVZ
     Indication: Neuromyelitis optica spectrum disorder
  2. DOXEPIN [Concomitant]
     Active Substance: DOXEPIN
     Indication: Pain
     Route: 065
  3. TYENNE [Concomitant]
     Active Substance: TOCILIZUMAB-AAZG
     Indication: Neuromyelitis optica spectrum disorder
     Route: 065

REACTIONS (6)
  - Paralysis [Unknown]
  - Headache [Unknown]
  - Fatigue [Unknown]
  - Pain [Unknown]
  - Blood glucose increased [Unknown]
  - Aphasia [Unknown]
